FAERS Safety Report 19217513 (Version 2)
Quarter: 2021Q2

REPORT INFORMATION
  Report Type: Spontaneous
  Country: CA (occurrence: CA)
  Receive Date: 20210505
  Receipt Date: 20210610
  Transmission Date: 20210717
  Serious: Yes (Other)
  Sender: FDA-Public Use
  Company Number: CA-PFIZER INC-2020390967

PATIENT
  Age: 67 Year
  Sex: Male

DRUGS (1)
  1. DAURISMO [Suspect]
     Active Substance: GLASDEGIB
     Indication: ACUTE MYELOID LEUKAEMIA
     Dosage: 100 MG, DAILY
     Route: 048
     Dates: start: 20201124

REACTIONS (5)
  - Osteomyelitis [Unknown]
  - Off label use [Unknown]
  - Localised infection [Not Recovered/Not Resolved]
  - Blood count abnormal [Unknown]
  - Product use issue [Unknown]
